FAERS Safety Report 10878937 (Version 1)
Quarter: 2015Q1

REPORT INFORMATION
  Report Type: Spontaneous
  Country: US (occurrence: None)
  Receive Date: 20150224
  Receipt Date: 20150224
  Transmission Date: 20150721
  Serious: Yes (Hospitalization)
  Sender: FDA-Public Use
  Company Number: None

PATIENT
  Age: 45 Year
  Sex: Female
  Weight: 112.7 kg

DRUGS (1)
  1. ATORVASTATIN [Suspect]
     Active Substance: ATORVASTATIN
     Indication: HYPERLIPIDAEMIA
     Route: 048
     Dates: start: 20131119, end: 20141224

REACTIONS (12)
  - Blood alkaline phosphatase increased [None]
  - Dizziness [None]
  - Nausea [None]
  - Aspartate aminotransferase increased [None]
  - Alanine aminotransferase increased [None]
  - Blood bilirubin increased [None]
  - Hepatic steatosis [None]
  - Therapy cessation [None]
  - Drug level decreased [None]
  - Balance disorder [None]
  - Muscle twitching [None]
  - Musculoskeletal pain [None]

NARRATIVE: CASE EVENT DATE: 20141223
